FAERS Safety Report 9769195 (Version 3)
Quarter: 2013Q4

REPORT INFORMATION
  Report Type: Report from Study
  Country: PT (occurrence: PT)
  Receive Date: 20131218
  Receipt Date: 20131230
  Transmission Date: 20140711
  Serious: Yes (Other)
  Sender: FDA-Public Use
  Company Number: PT-ROCHE-1319812

PATIENT
  Age: 80 Year
  Sex: Female
  Weight: 52.5 kg

DRUGS (8)
  1. TOCILIZUMAB [Suspect]
     Indication: RHEUMATOID ARTHRITIS
     Route: 042
     Dates: start: 20130521
  2. PERINDOPRIL [Concomitant]
     Indication: HYPERTENSION
     Route: 048
     Dates: start: 20080101
  3. NIFEDIPINE [Concomitant]
     Indication: HYPERTENSION
     Route: 065
     Dates: start: 20110101
  4. NIFEDIPINE [Concomitant]
     Route: 048
     Dates: start: 20080101
  5. OMEPRAZOLE [Concomitant]
     Route: 065
     Dates: start: 20110101
  6. OMEPRAZOLE [Concomitant]
     Route: 048
     Dates: start: 20120101
  7. HYDROXYCHLOROQUINE [Concomitant]
     Route: 048
     Dates: start: 20120501
  8. PREDNISOLONE [Concomitant]
     Indication: RHEUMATOID ARTHRITIS
     Route: 048
     Dates: start: 20120301

REACTIONS (2)
  - Skin ulcer [Recovering/Resolving]
  - Infected skin ulcer [Recovered/Resolved]
